FAERS Safety Report 4780803-4 (Version None)
Quarter: 2005Q3

REPORT INFORMATION
  Report Type: 
  Country: None (occurrence: None)
  Receive Date: 20050914
  Receipt Date: 20040924
  Transmission Date: 20060218
  Serious: Yes (Life-Threatening, Hospitalization)
  Sender: FDA-Public Use
  Company Number: 163-20785-04070349

PATIENT
  Age: 72 Year
  Sex: Female

DRUGS (5)
  1. THALOMID [Suspect]
     Indication: MULTIPLE MYELOMA
     Dosage: 200 MG, QHS, ORAL
     Route: 048
     Dates: start: 20031101, end: 20040601
  2. BIAXIN [Concomitant]
  3. DECADRON [Concomitant]
  4. GLUCOPHAGE [Concomitant]
  5. DOXIL [Concomitant]

REACTIONS (5)
  - DIABETES MELLITUS [None]
  - FEBRILE NEUTROPENIA [None]
  - HYPERTENSION [None]
  - PNEUMONIA [None]
  - RENAL FAILURE ACUTE [None]
